FAERS Safety Report 10145799 (Version 1)
Quarter: 2014Q2

REPORT INFORMATION
  Report Type: Spontaneous
  Country: US (occurrence: US)
  Receive Date: 20140501
  Receipt Date: 20140501
  Transmission Date: 20141212
  Serious: No
  Sender: FDA-Public Use
  Company Number: US-ABBVIE-14P-163-1202408-00

PATIENT
  Sex: Female
  Weight: 71.28 kg

DRUGS (4)
  1. CREON [Suspect]
     Indication: DYSPEPSIA
     Dosage: WITH MEALS
  2. LEVOTHYROXINE [Concomitant]
     Indication: HYPOTHYROIDISM
  3. EYE DROPS [Concomitant]
     Indication: INTRAOCULAR PRESSURE INCREASED
  4. IRBESARTAN AND HYDROCHLOROTHIAZIDE [Concomitant]
     Indication: HYPERTENSION

REACTIONS (1)
  - Treatment noncompliance [Not Recovered/Not Resolved]
